FAERS Safety Report 18484531 (Version 1)
Quarter: 2020Q4

REPORT INFORMATION
  Report Type: Spontaneous
  Country: US (occurrence: US)
  Receive Date: 20201110
  Receipt Date: 20201110
  Transmission Date: 20210114
  Serious: No
  Sender: FDA-Public Use
  Company Number: US-SA-2020SA309976

PATIENT

DRUGS (2)
  1. VICTOZA [Concomitant]
     Active Substance: LIRAGLUTIDE
     Dosage: UNK
  2. LANTUS [Suspect]
     Active Substance: INSULIN GLARGINE
     Dosage: UNK

REACTIONS (2)
  - Product dose omission issue [Unknown]
  - Blood glucose increased [Unknown]
